FAERS Safety Report 7994556-X (Version None)
Quarter: 2011Q4

REPORT INFORMATION
  Report Type: 
  Country: None (occurrence: None)
  Receive Date: 20111220
  Receipt Date: 20111213
  Transmission Date: 20120403
  Serious: Yes (Other)
  Sender: FDA-Public Use
  Company Number: SE-PFIZER INC-2011306446

PATIENT
  Age: 29 Year
  Sex: Male

DRUGS (6)
  1. OXAZEPAM [Concomitant]
     Dosage: 10 MG, AS NEEDED
  2. LYRICA [Suspect]
     Dosage: 1500MG/DAY
  3. ZYPREXA [Concomitant]
     Dosage: 5 MG, UNK
  4. LYRICA [Suspect]
     Dosage: 300MG, DAILY
  5. ESCITALOPRAM [Concomitant]
     Dosage: UNK
  6. BUPROPION HYDROCHLORIDE [Concomitant]
     Dosage: UNK

REACTIONS (5)
  - DRUG DEPENDENCE [None]
  - BURNING SENSATION [None]
  - FEELING ABNORMAL [None]
  - DRUG WITHDRAWAL SYNDROME [None]
  - PANIC ATTACK [None]
